FAERS Safety Report 9029808 (Version 2)
Quarter: 2013Q1

REPORT INFORMATION
  Report Type: Spontaneous
  Country: US (occurrence: US)
  Receive Date: 20130124
  Receipt Date: 20130219
  Transmission Date: 20140127
  Serious: Yes (Other)
  Sender: FDA-Public Use
  Company Number: US-AMGEN-USASP2013003620

PATIENT
  Age: 64 Year
  Sex: Male
  Weight: 150.11 kg

DRUGS (8)
  1. ENBREL [Suspect]
     Indication: PSORIASIS
     Dosage: 50 MG, WEEKLY
     Route: 058
     Dates: start: 20110101, end: 20121226
  2. ALBUTEROL                          /00139501/ [Concomitant]
     Indication: CHRONIC OBSTRUCTIVE PULMONARY DISEASE
     Dosage: UNK
  3. ADVAIR [Concomitant]
     Indication: CHRONIC OBSTRUCTIVE PULMONARY DISEASE
     Dosage: 250/50, QD
  4. AVAPRO [Concomitant]
     Indication: HYPERTENSION
     Dosage: 300 MG, UNK
     Route: 048
  5. CATAPRES                           /00171101/ [Concomitant]
     Dosage: 0.2 MG, QD
  6. CITALOPRAM [Concomitant]
     Indication: DEPRESSION
     Dosage: UNK UNK, QD
     Route: 048
  7. METFORMIN [Concomitant]
     Indication: DIABETES MELLITUS
     Dosage: 850 MG, TID
  8. ONGLYZA [Concomitant]
     Indication: DIABETES MELLITUS
     Dosage: 2.5 MG, UNK
     Route: 048

REACTIONS (1)
  - Prostate cancer [Not Recovered/Not Resolved]
